FAERS Safety Report 8551222-X (Version None)
Quarter: 2012Q3

REPORT INFORMATION
  Report Type: 
  Country: None (occurrence: None)
  Receive Date: 20120730
  Receipt Date: 20120203
  Transmission Date: 20120928
  Serious: No
  Sender: FDA-Public Use
  Company Number: US-ALLERGAN-1201664US

PATIENT
  Sex: Female

DRUGS (2)
  1. LATISSE [Suspect]
     Indication: GROWTH OF EYELASHES
     Dosage: UNK
     Route: 061
     Dates: start: 20110101, end: 20110401
  2. LATISSE [Suspect]
     Dosage: UNK
     Route: 061
     Dates: start: 20090101

REACTIONS (3)
  - SKIN DISCOLOURATION [None]
  - MADAROSIS [None]
  - IRIS HYPERPIGMENTATION [None]
